FAERS Safety Report 4451495-9 (Version None)
Quarter: 2004Q3

REPORT INFORMATION
  Report Type: 
  Country: None (occurrence: None)
  Receive Date: 20040915
  Receipt Date: 20040831
  Transmission Date: 20050211
  Serious: Yes (Hospitalization)
  Sender: FDA-Public Use
  Company Number: 2004-BP-07631NB

PATIENT
  Age: 72 Year
  Sex: Female

DRUGS (4)
  1. BI-SIFROL TABLETS (PRAMIPEXOLE DIHYDROCHLORIDE) (TA) [Suspect]
     Indication: PARKINSON'S DISEASE
     Dosage: 1 MG PO
     Route: 048
     Dates: start: 20040604, end: 20040727
  2. PAXIL [Concomitant]
  3. LOCHOL (FLUVASTATIN SODIUM) (KA) [Concomitant]
  4. ALPRAZOLAM [Concomitant]

REACTIONS (1)
  - LIVER DISORDER [None]
